FAERS Safety Report 16925587 (Version 1)
Quarter: 2019Q4

REPORT INFORMATION
  Report Type: Spontaneous
  Country: GB (occurrence: GB)
  Receive Date: 20191016
  Receipt Date: 20191016
  Transmission Date: 20200122
  Serious: Yes (Disabling)
  Sender: FDA-Public Use
  Company Number: GB-MYLANLABS-2019M1097129

PATIENT
  Age: 22 Year
  Sex: Male
  Weight: 76 kg

DRUGS (4)
  1. TAZOCIN [Concomitant]
     Active Substance: PIPERACILLIN SODIUM\TAZOBACTAM SODIUM
     Dosage: UNK
  2. TESTOSTERONE. [Concomitant]
     Active Substance: TESTOSTERONE
     Dosage: UNK
  3. CO-AMOXICLAV                       /00756801/ [Concomitant]
     Active Substance: AMOXICILLIN\CLAVULANIC ACID
     Dosage: UNK
  4. VANCOMYCIN [Suspect]
     Active Substance: VANCOMYCIN
     Indication: PRODUCT USED FOR UNKNOWN INDICATION
     Dosage: 48 HOUR CONTINUOUS INFUSION ADJUSTED TO RENAL AND LEVELS
     Route: 051
     Dates: start: 20190719, end: 20190721

REACTIONS (2)
  - Ototoxicity [Not Recovered/Not Resolved]
  - Deafness neurosensory [Unknown]

NARRATIVE: CASE EVENT DATE: 20190730
